FAERS Safety Report 5098762-6 (Version None)
Quarter: 2006Q3

REPORT INFORMATION
  Report Type: 
  Country: None (occurrence: None)
  Receive Date: 20060907
  Receipt Date: 20060818
  Transmission Date: 20061208
  Serious: Yes (Other)
  Sender: FDA-Public Use
  Company Number: BE-GLAXOSMITHKLINE-B0436773A

PATIENT
  Age: 41 Year
  Sex: Female
  Weight: 47 kg

DRUGS (6)
  1. KIVEXA [Suspect]
     Indication: HIV INFECTION
     Dosage: 1TAB PER DAY
     Route: 048
     Dates: start: 20060628, end: 20060818
  2. ISOPTIN [Concomitant]
     Indication: TACHYCARDIA
     Dosage: 120MG PER DAY
     Route: 048
     Dates: start: 20060531
  3. SYMBICORT TURBOHALER [Concomitant]
     Indication: CHRONIC OBSTRUCTIVE PULMONARY DISEASE
     Dates: start: 20060316
  4. BIOCODONE [Concomitant]
     Indication: COUGH
     Dosage: 10MCG UNKNOWN
     Route: 048
     Dates: start: 20060712
  5. TELZIR [Concomitant]
     Dosage: 1400MG PER DAY
     Dates: start: 20050704
  6. NORVIR [Concomitant]
     Dosage: 100MG PER DAY
     Dates: start: 20050704

REACTIONS (5)
  - ARTHRALGIA [None]
  - DRUG HYPERSENSITIVITY [None]
  - LEUKOCYTOSIS [None]
  - MALAISE [None]
  - MYALGIA [None]
